FAERS Safety Report 7262691-X (Version None)
Quarter: 2011Q1

REPORT INFORMATION
  Report Type: 
  Country: None (occurrence: None)
  Receive Date: 20110120
  Receipt Date: 20110105
  Transmission Date: 20110831
  Serious: Yes (Death, Hospitalization)
  Sender: FDA-Public Use
  Company Number: 2011S1000004

PATIENT
  Age: 49 Year
  Sex: Female

DRUGS (11)
  1. PERCOCET [Suspect]
     Indication: BACK PAIN
     Dosage: 1625 MG; QD; PO
     Route: 048
     Dates: end: 20101127
  2. PERCOCET [Suspect]
     Indication: MIGRAINE
     Dosage: 1625 MG; QD; PO
     Route: 048
     Dates: end: 20101127
  3. FENTORA [Suspect]
     Indication: BACK PAIN
     Dosage: 400 MG; QD
     Dates: end: 20101127
  4. FENTORA [Suspect]
     Indication: MIGRAINE
     Dosage: 400 MG; QD
     Dates: end: 20101127
  5. SOMA [Suspect]
     Indication: BACK PAIN
     Dosage: 250 MG; QID; PO
     Route: 048
     Dates: end: 20101127
  6. SOMA [Suspect]
     Indication: MIGRAINE
     Dosage: 250 MG; QID; PO
     Route: 048
     Dates: end: 20101127
  7. LEXAPRO [Suspect]
     Indication: DEPRESSION
     Dosage: 20 MG; QD; PO
     Route: 048
     Dates: start: 20100604, end: 20101127
  8. VALIUM [Suspect]
     Dates: end: 20101127
  9. FENTANYL [Suspect]
     Indication: BACK PAIN
     Dosage: 400 MG; QD; TDER
     Route: 062
     Dates: end: 20101127
  10. FENTANYL [Suspect]
     Indication: MIGRAINE
     Dosage: 400 MG; QD; TDER
     Route: 062
     Dates: end: 20101127
  11. ZIPSOR [Suspect]
     Indication: BACK PAIN
     Dosage: 25 MG
     Dates: end: 20101127

REACTIONS (5)
  - INCORRECT ROUTE OF DRUG ADMINISTRATION [None]
  - CHEST PAIN [None]
  - LOSS OF CONSCIOUSNESS [None]
  - CEREBROVASCULAR ACCIDENT [None]
  - DRUG ABUSE [None]
